FAERS Safety Report 5968427-4 (Version None)
Quarter: 2008Q4

REPORT INFORMATION
  Report Type: 
  Country: None (occurrence: None)
  Receive Date: 20081126
  Receipt Date: 20081124
  Transmission Date: 20090506
  Serious: Yes (Death)
  Sender: FDA-Public Use
  Company Number: ZA-BRISTOL-MYERS SQUIBB COMPANY-14418446

PATIENT
  Age: 62 Year
  Sex: Female

DRUGS (1)
  1. VEPESID [Suspect]

REACTIONS (1)
  - MEDICATION ERROR [None]
